FAERS Safety Report 4627323-5 (Version None)
Quarter: 2005Q1

REPORT INFORMATION
  Report Type: 
  Country: None (occurrence: None)
  Receive Date: 20050331
  Receipt Date: 20050318
  Transmission Date: 20050727
  Serious: Yes (Other)
  Sender: FDA-Public Use
  Company Number: HQWYE858604MAR05

PATIENT
  Age: 59 Year
  Sex: Female
  Weight: 115.77 kg

DRUGS (21)
  1. RAPAMUNE [Suspect]
     Indication: PROPHYLAXIS AGAINST TRANSPLANT REJECTION
     Dosage: SEE IMAGE
     Route: 048
     Dates: start: 20050211, end: 20050223
  2. RAPAMUNE [Suspect]
     Indication: PROPHYLAXIS AGAINST TRANSPLANT REJECTION
     Dosage: SEE IMAGE
     Route: 048
     Dates: start: 20050224, end: 20050303
  3. RAPAMUNE [Suspect]
     Indication: PROPHYLAXIS AGAINST TRANSPLANT REJECTION
     Dosage: SEE IMAGE
     Route: 048
     Dates: start: 20050309
  4. GABAPENTIN [Concomitant]
  5. SERTRALINE (SERTRALINE) [Concomitant]
  6. ZOLPIDEM TARTRATE [Concomitant]
  7. DIVALPROEX SODIUM [Concomitant]
  8. FUROSEMIDE [Concomitant]
  9. GLIMEPIRIDE [Concomitant]
  10. OMEPRAZOLE [Concomitant]
  11. POLYCARBOPHIL (POLYCARBOPHIL) [Concomitant]
  12. MAGNESIUM OXIDE (MAGNESIUM OXIDE) [Concomitant]
  13. FOLIC ACID [Concomitant]
  14. CALCIUM (CALCIUM) [Concomitant]
  15. MULTIVITAMINS (ASCORBIC ACID/ERGOCALCIFEROL/FOLIC ACID/NICOTINAMIDE/PA [Concomitant]
  16. ROSIGLITAZONE (ROSIGLITAZONE) [Concomitant]
  17. AVEENO BATH         (AVENA/PETROLATUM) [Concomitant]
  18. AMLODIPINE [Concomitant]
  19. LISINOPRIL [Concomitant]
  20. ......... [Concomitant]
  21. VYTORIN [Concomitant]

REACTIONS (8)
  - ACCIDENTAL OVERDOSE [None]
  - BLOOD CHOLESTEROL INCREASED [None]
  - BLOOD TRIGLYCERIDES INCREASED [None]
  - HAEMATOCRIT DECREASED [None]
  - HEADACHE [None]
  - MEDICATION ERROR [None]
  - ORAL PAIN [None]
  - WHITE BLOOD CELL COUNT DECREASED [None]
